FAERS Safety Report 6026712-4 (Version None)
Quarter: 2008Q4

REPORT INFORMATION
  Report Type: 
  Country: None (occurrence: None)
  Receive Date: 20081222
  Receipt Date: 20080925
  Transmission Date: 20090506
  Serious: No
  Sender: FDA-Public Use
  Company Number: US-WYE-H06141508

PATIENT
  Age: 59 Year
  Sex: Female
  Weight: 74.91 kg

DRUGS (6)
  1. PRISTIQ [Suspect]
     Indication: DEPRESSION
     Dosage: 50 MG 1X PER 1 DAY, ORAL
     Route: 048
     Dates: start: 20080918
  2. ATENOLOL [Concomitant]
  3. FOSAMAX [Concomitant]
  4. BONIVA [Concomitant]
  5. SIMVASTATIN [Concomitant]
  6. AMBIEN [Concomitant]

REACTIONS (3)
  - HEADACHE [None]
  - HEART RATE INCREASED [None]
  - PSYCHOMOTOR HYPERACTIVITY [None]
